FAERS Safety Report 20740524 (Version 1)
Quarter: 2022Q2

REPORT INFORMATION
  Report Type: Spontaneous
  Country: AU (occurrence: AU)
  Receive Date: 20220422
  Receipt Date: 20220422
  Transmission Date: 20220721
  Serious: Yes (Death)
  Sender: FDA-Public Use
  Company Number: AU-JNJFOC-20220431211

PATIENT
  Age: 40 Year
  Sex: Male

DRUGS (3)
  1. FENTANYL [Suspect]
     Active Substance: FENTANYL
     Indication: Product used for unknown indication
     Route: 065
  2. DIAZEPAM [Suspect]
     Active Substance: DIAZEPAM
     Indication: Product used for unknown indication
     Route: 065
  3. PREGABALIN [Suspect]
     Active Substance: PREGABALIN
     Indication: Product used for unknown indication
     Route: 065

REACTIONS (8)
  - Aspiration [Fatal]
  - Substance abuse [Fatal]
  - Drug abuse [Fatal]
  - Drug dependence [Fatal]
  - Toxicity to various agents [Fatal]
  - Neuralgia [Fatal]
  - Anxiety [Fatal]
  - Drug withdrawal maintenance therapy [Fatal]

NARRATIVE: CASE EVENT DATE: 20180101
